FAERS Safety Report 20736064 (Version 2)
Quarter: 2022Q2

REPORT INFORMATION
  Report Type: Spontaneous
  Country: DE (occurrence: None)
  Receive Date: 20220421
  Receipt Date: 20220425
  Transmission Date: 20220721
  Serious: Yes (Hospitalization)
  Sender: FDA-Public Use
  Company Number: DE-ROCHE-3047524

PATIENT
  Age: 29 Year
  Sex: Female

DRUGS (1)
  1. OCREVUS [Suspect]
     Active Substance: OCRELIZUMAB
     Indication: Multiple sclerosis
     Dosage: MAY/2021, SHE RECEIVED LAST DOSE OF OCRELIZUMAB INFUSION.
     Route: 042
     Dates: start: 20200915, end: 20210511

REACTIONS (1)
  - Migraine [Recovering/Resolving]
